FAERS Safety Report 17469511 (Version 8)
Quarter: 2025Q1

REPORT INFORMATION
  Report Type: Report from Study
  Country: US (occurrence: US)
  Receive Date: 20200227
  Receipt Date: 20250201
  Transmission Date: 20250408
  Serious: Yes (Hospitalization)
  Sender: TAKEDA
  Company Number: US-SHIRE-US202007309

PATIENT
  Sex: Female

DRUGS (4)
  1. HUMAN IMMUNOGLOBULIN G [Suspect]
     Active Substance: HUMAN IMMUNOGLOBULIN G
     Indication: Primary immunodeficiency syndrome
     Dosage: 4 GRAM, 2/WEEK
  2. HUMAN IMMUNOGLOBULIN G [Suspect]
     Active Substance: HUMAN IMMUNOGLOBULIN G
     Indication: Immunodeficiency
  3. INFLUENZA VIRUS VACCINE [Suspect]
     Active Substance: INFLUENZA VIRUS VACCINE
     Indication: Product used for unknown indication
  4. Covid-19 vaccine [Concomitant]
     Indication: COVID-19 immunisation

REACTIONS (8)
  - Infusion site mass [Unknown]
  - Infusion site discomfort [Unknown]
  - Arthralgia [Unknown]
  - Fibromyalgia [Unknown]
  - Illness [Unknown]
  - Headache [Unknown]
  - Fatigue [Unknown]
  - COVID-19 [Recovered/Resolved]
